FAERS Safety Report 17095244 (Version 1)
Quarter: 2019Q4

REPORT INFORMATION
  Report Type: Spontaneous
  Country: US (occurrence: US)
  Receive Date: 20191104
  Receipt Date: 20191104
  Transmission Date: 20200122
  Serious: No
  Sender: FDA-Public Use
  Company Number: None

PATIENT
  Age: 61 Year
  Sex: Female

DRUGS (2)
  1. KISQALI [Suspect]
     Active Substance: RIBOCICLIB
     Indication: NEOPLASM MALIGNANT
     Route: 048
     Dates: start: 20191022
  2. LETROZOLE ++ 2.5MG BRECKENRIDGE [Suspect]
     Active Substance: LETROZOLE
     Indication: NEOPLASM MALIGNANT
     Route: 048
     Dates: start: 20191022

REACTIONS (5)
  - Gastrointestinal sounds abnormal [None]
  - Nausea [None]
  - Decreased appetite [None]
  - Flatulence [None]
  - Discomfort [None]

NARRATIVE: CASE EVENT DATE: 20191022
